FAERS Safety Report 13987867 (Version 2)
Quarter: 2017Q4

REPORT INFORMATION
  Report Type: Spontaneous
  Country: US (occurrence: US)
  Receive Date: 20170919
  Receipt Date: 20171122
  Transmission Date: 20180321
  Serious: No
  Sender: FDA-Public Use
  Company Number: US-009507513-1709USA004928

PATIENT
  Sex: Male

DRUGS (2)
  1. PROVENTIL [Suspect]
     Active Substance: ALBUTEROL
     Indication: PNEUMONITIS
     Dosage: 90 MICROGRAM, AS NEEDED
     Route: 055
  2. SUDAFED [Concomitant]
     Active Substance: PSEUDOEPHEDRINE HYDROCHLORIDE

REACTIONS (8)
  - Cough [Unknown]
  - Product use in unapproved indication [Unknown]
  - Lung disorder [Not Recovered/Not Resolved]
  - Hypersensitivity [Not Recovered/Not Resolved]
  - Drug dose omission [Unknown]
  - Throat tightness [Unknown]
  - Product use issue [Unknown]
  - Product container issue [Unknown]
